FAERS Safety Report 25423435 (Version 1)
Quarter: 2025Q2

REPORT INFORMATION
  Report Type: Spontaneous
  Country: US (occurrence: None)
  Receive Date: 20250610
  Receipt Date: 20250610
  Transmission Date: 20250717
  Serious: No
  Sender: FDA-CTU
  Company Number: None

PATIENT
  Age: 54 Year
  Sex: Female
  Weight: 76.5 kg

DRUGS (2)
  1. ZICAM COLD REMEDY MEDICATED NASAL SWABS [Suspect]
     Active Substance: HOMEOPATHICS
     Indication: Nasopharyngitis
     Route: 050
     Dates: start: 20250111, end: 20250117
  2. Wellbutrin 150 mg [Concomitant]

REACTIONS (3)
  - Nasal discomfort [None]
  - Rhinalgia [None]
  - Nasal mucosal erosion [None]

NARRATIVE: CASE EVENT DATE: 20250117
